FAERS Safety Report 21732243 (Version 1)
Quarter: 2022Q4

REPORT INFORMATION
  Report Type: Spontaneous
  Country: US (occurrence: None)
  Receive Date: 20221214
  Receipt Date: 20221214
  Transmission Date: 20230113
  Serious: Yes (Hospitalization)
  Sender: FDA-Public Use
  Company Number: None

PATIENT
  Sex: Female

DRUGS (1)
  1. VELETRI (EPOPROSTENOL SODIUM) [Suspect]
     Active Substance: EPOPROSTENOL SODIUM
     Indication: Pulmonary arterial hypertension
     Dosage: OTHER FREQUENCY : CONTINUOUSLY;?
     Route: 042
     Dates: start: 202208

REACTIONS (2)
  - Fall [None]
  - Asthenia [None]
